FAERS Safety Report 5300476-1 (Version None)
Quarter: 2007Q2

REPORT INFORMATION
  Report Type: 
  Country: None (occurrence: None)
  Receive Date: 20070413
  Receipt Date: 20070413
  Transmission Date: 20071010
  Serious: Yes (Other)
  Sender: FDA-Public Use
  Company Number: None

PATIENT
  Age: 62 Year
  Sex: Female
  Weight: 61.6892 kg

DRUGS (1)
  1. LEUKINE [Suspect]
     Indication: NEUTROPENIA
     Dosage: 500 MCG DAILY SQ
     Route: 058
     Dates: start: 20070406, end: 20070406

REACTIONS (2)
  - ASTHENIA [None]
  - DIZZINESS [None]
